FAERS Safety Report 20379788 (Version 1)
Quarter: 2022Q1

REPORT INFORMATION
  Report Type: Spontaneous
  Country: US (occurrence: US)
  Receive Date: 20220126
  Receipt Date: 20220126
  Transmission Date: 20220423
  Serious: No
  Sender: FDA-Public Use
  Company Number: US-LUNDBECK-DKLU3043360

PATIENT
  Age: 33 Year
  Sex: Female

DRUGS (1)
  1. ONFI [Suspect]
     Active Substance: CLOBAZAM
     Indication: Tonic clonic movements
     Route: 048
     Dates: start: 2018

REACTIONS (4)
  - Urinary tract infection [Unknown]
  - Headache [Recovered/Resolved]
  - Viral infection [Recovered/Resolved]
  - Cough [Recovered/Resolved]
